FAERS Safety Report 5069070-4 (Version None)
Quarter: 2006Q3

REPORT INFORMATION
  Report Type: 
  Country: None (occurrence: None)
  Receive Date: 20060802
  Receipt Date: 20060703
  Transmission Date: 20061208
  Serious: Yes (Disabling)
  Sender: FDA-Public Use
  Company Number: SG-MERCK-0607SGP00001

PATIENT
  Sex: Female
  Weight: 50 kg

DRUGS (2)
  1. FOSAMAX [Suspect]
     Indication: OSTEOPENIA
     Route: 048
     Dates: start: 20060401, end: 20060101
  2. FEMARA [Concomitant]
     Indication: BREAST CANCER
     Route: 065

REACTIONS (1)
  - ECZEMA [None]
